FAERS Safety Report 4785207-6 (Version None)
Quarter: 2005Q3

REPORT INFORMATION
  Report Type: 
  Country: None (occurrence: None)
  Receive Date: 20050930
  Receipt Date: 20050314
  Transmission Date: 20060218
  Serious: Yes (Hospitalization)
  Sender: FDA-Public Use
  Company Number: US-MERCK-0503USA02921

PATIENT
  Age: 45 Year
  Sex: Male

DRUGS (5)
  1. VIOXX [Suspect]
     Indication: OSTEOARTHRITIS
     Route: 048
     Dates: start: 20030904, end: 20040504
  2. ZOCOR [Concomitant]
     Route: 065
     Dates: start: 20030601
  3. ZANTAC [Concomitant]
     Route: 065
  4. NAPROXEN [Concomitant]
     Route: 065
     Dates: start: 20030101
  5. FLONASE [Concomitant]
     Route: 065

REACTIONS (6)
  - DYSPEPSIA [None]
  - GASTRIC ULCER [None]
  - GASTRITIS [None]
  - HIATUS HERNIA [None]
  - MYOCARDIAL INFARCTION [None]
  - ULCER HAEMORRHAGE [None]
